FAERS Safety Report 9346374 (Version 1)
Quarter: 2013Q2

REPORT INFORMATION
  Report Type: Spontaneous
  Country: US (occurrence: US)
  Receive Date: 20130613
  Receipt Date: 20130613
  Transmission Date: 20140414
  Serious: Yes (Other)
  Sender: FDA-Public Use
  Company Number: US-PFIZER INC-2013177249

PATIENT
  Age: 52 Year
  Sex: Female
  Weight: 81.63 kg

DRUGS (1)
  1. ZOLOFT [Suspect]
     Indication: DEPRESSION
     Dosage: UNK, 2X/DAY
     Route: 048

REACTIONS (4)
  - Drug dependence [Unknown]
  - Heart valve incompetence [Unknown]
  - Musculoskeletal pain [Unknown]
  - Malaise [Unknown]
